FAERS Safety Report 13487181 (Version 1)
Quarter: 2017Q2

REPORT INFORMATION
  Report Type: Spontaneous
  Country: US (occurrence: US)
  Receive Date: 20170426
  Receipt Date: 20170426
  Transmission Date: 20170830
  Serious: No
  Sender: FDA-Public Use
  Company Number: US-ALKERMES INC.-ALK-2016-001784

PATIENT
  Sex: Female

DRUGS (1)
  1. VIVITROL [Suspect]
     Active Substance: NALTREXONE
     Indication: DEPENDENCE
     Dosage: 380 MG, UNK
     Route: 030

REACTIONS (3)
  - Injection site swelling [Recovered/Resolved]
  - Drug dose omission [Not Recovered/Not Resolved]
  - Injection site reaction [Recovered/Resolved]
